FAERS Safety Report 7030429-7 (Version None)
Quarter: 2010Q4

REPORT INFORMATION
  Report Type: 
  Country: None (occurrence: None)
  Receive Date: 20101006
  Receipt Date: 20100923
  Transmission Date: 20110411
  Serious: Yes (Life-Threatening, Hospitalization)
  Sender: FDA-Public Use
  Company Number: US-ACTELION-A-US2010-37113

PATIENT
  Sex: Female

DRUGS (5)
  1. BOSENTAN TABLET UNKNOWN US MG [Suspect]
     Indication: PULMONARY ARTERIAL HYPERTENSION
     Dosage: UNK
     Route: 048
     Dates: start: 20080707
  2. BOSENTAN TABLET UNKNOWN US MG [Suspect]
     Dosage: 62.5
     Route: 048
     Dates: start: 20100501
  3. BOSENTAN TABLET UNKNOWN US MG [Suspect]
     Dosage: 125
     Route: 048
     Dates: start: 20100623
  4. REVATIO [Concomitant]
  5. COUMADIN [Concomitant]

REACTIONS (6)
  - GASTROOESOPHAGEAL REFLUX DISEASE [None]
  - INTERSTITIAL LUNG DISEASE [None]
  - ISCHAEMIC HEPATITIS [None]
  - PNEUMONIA [None]
  - PULMONARY HYPERTENSION [None]
  - SARCOIDOSIS [None]
